FAERS Safety Report 17677208 (Version 2)
Quarter: 2020Q2

REPORT INFORMATION
  Report Type: Spontaneous
  Country: US (occurrence: US)
  Receive Date: 20200416
  Receipt Date: 20200430
  Transmission Date: 20200714
  Serious: Yes (Other)
  Sender: FDA-Public Use
  Company Number: US-PURDUE-USA-2020-0151751

PATIENT
  Sex: Female

DRUGS (2)
  1. OXYCODONE HYDROCHLORIDE (SIMILAR TO NDA 22-272) [Suspect]
     Active Substance: OXYCODONE HYDROCHLORIDE
     Indication: PAIN
     Dosage: 5 MG, 1 TO 2 TABLETS Q4H
     Route: 048
     Dates: start: 2014, end: 2014
  2. OXYCONTIN [Suspect]
     Active Substance: OXYCODONE HYDROCHLORIDE
     Indication: PAIN
     Dosage: 10 MG, Q12H
     Route: 048
     Dates: start: 2014, end: 2014

REACTIONS (13)
  - Urethral perforation [Recovered/Resolved]
  - Impaired work ability [Unknown]
  - Bladder dysfunction [Recovered/Resolved]
  - Back disorder [Not Recovered/Not Resolved]
  - Shock [Not Recovered/Not Resolved]
  - Euphoric mood [Unknown]
  - Asthenia [Not Recovered/Not Resolved]
  - Inappropriate schedule of product administration [Recovered/Resolved]
  - Urethritis [Unknown]
  - Bladder prolapse [Recovered/Resolved]
  - Pancreatic disorder [Not Recovered/Not Resolved]
  - Quality of life decreased [Not Recovered/Not Resolved]
  - Malaise [Unknown]

NARRATIVE: CASE EVENT DATE: 2014
